FAERS Safety Report 8996823 (Version 1)
Quarter: 2012Q4

REPORT INFORMATION
  Report Type: Spontaneous
  Country: US (occurrence: None)
  Receive Date: 20121228
  Receipt Date: 20121228
  Transmission Date: 20130627
  Serious: Yes (Disabling)
  Sender: FDA-Public Use
  Company Number: None

PATIENT
  Sex: Female
  Weight: 70.31 kg

DRUGS (1)
  1. ZICAM [Suspect]
     Indication: COLD
     Dosage: 3 sprays  2 times daily
less than 1 week

REACTIONS (2)
  - Hyposmia [None]
  - Hypogeusia [None]
